FAERS Safety Report 24861506 (Version 2)
Quarter: 2025Q1

REPORT INFORMATION
  Report Type: Report from Study
  Country: CN (occurrence: CN)
  Receive Date: 20250120
  Receipt Date: 20250203
  Transmission Date: 20250409
  Serious: Yes (Hospitalization, Other)
  Sender: GILEAD
  Company Number: CN-GILEAD-2024-0698109

PATIENT
  Age: 72 Year
  Sex: Female

DRUGS (4)
  1. SACITUZUMAB GOVITECAN-HZIY [Suspect]
     Active Substance: SACITUZUMAB GOVITECAN-HZIY
     Indication: Breast cancer
     Dosage: 540 MG, Q3WK
     Route: 065
     Dates: start: 20241219
  2. SACITUZUMAB GOVITECAN-HZIY [Suspect]
     Active Substance: SACITUZUMAB GOVITECAN-HZIY
     Dosage: 540 MG, Q3WK (D1, D8)
     Route: 041
     Dates: start: 20241227
  3. SACITUZUMAB GOVITECAN-HZIY [Suspect]
     Active Substance: SACITUZUMAB GOVITECAN-HZIY
     Dosage: 360 MG, Q3WK,  (D1, D8)
     Route: 041
     Dates: start: 20250113
  4. SACITUZUMAB GOVITECAN-HZIY [Suspect]
     Active Substance: SACITUZUMAB GOVITECAN-HZIY
     Dosage: 360 MG, Q3WK, (D1, D8)
     Route: 041
     Dates: start: 20250120

REACTIONS (7)
  - Myelosuppression [Unknown]
  - Hypokalaemia [Unknown]
  - Hyponatraemia [Unknown]
  - Anaemia [Unknown]
  - Hepatic failure [Unknown]
  - Nutritional condition abnormal [Unknown]
  - White blood cell count decreased [Unknown]

NARRATIVE: CASE EVENT DATE: 20250105
